FAERS Safety Report 8697507 (Version 2)
Quarter: 2013Q1

REPORT INFORMATION
  Report Type: Report from Study
  Country: JP (occurrence: JP)
  Receive Date: 20120801
  Receipt Date: 20130115
  Transmission Date: 20140127
  Serious: Yes (Hospitalization, Other)
  Sender: FDA-Public Use
  Company Number: JP-009507513-1207JPN007451

PATIENT
  Age: 51 Year
  Sex: Male
  Weight: 71 kg

DRUGS (9)
  1. PEGINTRON [Suspect]
     Indication: HEPATITIS C
     Dosage: 100MCG/WEEK
     Route: 058
     Dates: start: 20120202, end: 20120224
  2. REBETOL [Suspect]
     Indication: HEPATITIS C
     Route: 048
     Dates: start: 20120202, end: 20120228
  3. REBETOL [Suspect]
     Indication: HEPATITIS C
     Route: 048
     Dates: start: 20120229, end: 20120305
  4. TELAVIC [Suspect]
     Indication: HEPATITIS C
     Route: 048
     Dates: start: 20120202, end: 20120228
  5. TELAVIC [Suspect]
     Route: 048
     Dates: start: 20120229, end: 20120305
  6. MUCOSTA [Concomitant]
     Indication: PROPHYLAXIS
     Route: 048
     Dates: start: 20120217
  7. URSO [Concomitant]
     Indication: HEPATITIS C
     Route: 048
     Dates: start: 20120315
  8. GASTER D [Concomitant]
     Route: 048
  9. MARZULENE-S [Concomitant]
     Route: 048

REACTIONS (10)
  - White blood cell count decreased [Not Recovered/Not Resolved]
  - Haemoglobin decreased [Not Recovered/Not Resolved]
  - Malaise [Recovered/Resolved]
  - Dysgeusia [Recovered/Resolved]
  - Decreased appetite [Recovered/Resolved]
  - Pancytopenia [Not Recovered/Not Resolved]
  - Epistaxis [Recovered/Resolved]
  - Drug eruption [None]
  - Diarrhoea [None]
  - Depressive symptom [None]
